FAERS Safety Report 7402063-8 (Version None)
Quarter: 2011Q2

REPORT INFORMATION
  Report Type: 
  Country: None (occurrence: None)
  Receive Date: 20110408
  Receipt Date: 20081116
  Transmission Date: 20111010
  Serious: Yes (Death, Other)
  Sender: FDA-Public Use
  Company Number: US-BAYER-200838749NA

PATIENT
  Sex: Female
  Weight: 90 kg

DRUGS (23)
  1. PAPAVERINE HCL [Concomitant]
     Dosage: 2 ML, UNK
     Route: 042
  2. PLATELETS [Concomitant]
     Dosage: 1 U, UNK
     Dates: start: 20030418
  3. MIACALCIN [Concomitant]
     Dosage: ONE SQUIRT DAILY
  4. ESTRAGEST [Concomitant]
     Dosage: ONE DAILY
     Route: 048
  5. VALIUM [Concomitant]
     Dosage: 2 MG, UNK
     Route: 048
  6. ZOCOR [Concomitant]
     Dosage: 20 MG, UNK
     Route: 048
  7. HEPARIN [Concomitant]
     Dosage: 3000 U
     Route: 042
  8. HEPARIN [Concomitant]
     Dosage: 30000 U, UNK
     Route: 042
  9. NORVASC [Concomitant]
     Dosage: 5 MG
     Route: 048
  10. PLAVIX [Concomitant]
     Dosage: 75 MG, UNK
     Route: 048
  11. ISOSORBIDE MONONITRATE [Concomitant]
     Dosage: 30 MG
  12. BECONASE [Concomitant]
     Dosage: 1 PUFF(S), QD
  13. MAGNESIUM [MAGNESIUM] [Concomitant]
     Dosage: 7 MBQ, BID
     Route: 048
  14. SYNTHROID [Concomitant]
     Dosage: 0.1 MG, UNK
     Route: 048
  15. FOLTX [CYANOCOBALAMIN,FOLIC ACID,PYRIDOXINE HYDROCHLORIDE] [Concomitant]
     Dosage: ONE DAILY
     Route: 048
  16. ACETYLSALICYLIC ACID SRT [Concomitant]
     Dosage: 325 MG, UNK
     Route: 048
  17. PROTAMINE SULFATE [Concomitant]
     Dosage: UNK MEQ, UNK
     Route: 042
  18. TRASYLOL [Suspect]
     Indication: CORONARY ARTERY BYPASS
     Dosage: PUMP PRIME 300 CC
     Route: 042
     Dates: start: 20030418
  19. TRASYLOL [Suspect]
     Indication: THROMBECTOMY
  20. VITAMIN E [Concomitant]
     Dosage: 400 IU, BID
     Route: 048
  21. SINGULAIR [Concomitant]
     Dosage: 10 MG, UNK
     Route: 048
  22. CALCIUM WITH VITAMIN D [Concomitant]
     Dosage: 500 MG, UNK
     Route: 048
  23. SODIUM BICARBONATE [Concomitant]
     Dosage: 50 MEQ, UNK
     Route: 042

REACTIONS (14)
  - RENAL IMPAIRMENT [None]
  - RENAL INJURY [None]
  - MYOCARDIAL INFARCTION [None]
  - EMOTIONAL DISTRESS [None]
  - ANXIETY [None]
  - ANHEDONIA [None]
  - UNEVALUABLE EVENT [None]
  - PAIN [None]
  - FEAR [None]
  - INJURY [None]
  - MULTI-ORGAN FAILURE [None]
  - RENAL FAILURE [None]
  - STRESS [None]
  - DEATH [None]
